FAERS Safety Report 20339508 (Version 3)
Quarter: 2022Q1

REPORT INFORMATION
  Report Type: Spontaneous
  Country: US (occurrence: US)
  Receive Date: 20220117
  Receipt Date: 20220314
  Transmission Date: 20220423
  Serious: No
  Sender: FDA-Public Use
  Company Number: US-Blueprint Medicines Corporation-SP-US-2021-002664

PATIENT
  Age: 35 Year
  Sex: Female

DRUGS (2)
  1. AYVAKIT [Suspect]
     Active Substance: AVAPRITINIB
     Indication: Systemic mastocytosis
     Route: 048
     Dates: start: 20211214
  2. AYVAKIT [Suspect]
     Active Substance: AVAPRITINIB
     Route: 048
     Dates: start: 20211214

REACTIONS (9)
  - Swelling [Recovering/Resolving]
  - Swelling face [Unknown]
  - Fatigue [Unknown]
  - Hair colour changes [Unknown]
  - Fluid retention [Recovering/Resolving]
  - Hypersensitivity [Unknown]
  - SARS-CoV-2 test positive [Unknown]
  - Product dose omission issue [Unknown]
  - Erythema [Unknown]

NARRATIVE: CASE EVENT DATE: 20220118
